FAERS Safety Report 22141425 (Version 1)
Quarter: 2023Q1

REPORT INFORMATION
  Report Type: Spontaneous
  Country: US (occurrence: US)
  Receive Date: 20230327
  Receipt Date: 20230327
  Transmission Date: 20230418
  Serious: No
  Sender: FDA-Public Use
  Company Number: US-PFIZER INC-202300119037

PATIENT
  Age: 7 Year
  Sex: Male

DRUGS (1)
  1. GENOTROPIN [Suspect]
     Active Substance: SOMATROPIN
     Indication: Blood growth hormone
     Dosage: 0.8 MG, DAILY

REACTIONS (4)
  - Poor quality device used [Unknown]
  - Device power source issue [Unknown]
  - Device failure [Unknown]
  - Device use issue [Unknown]

NARRATIVE: CASE EVENT DATE: 20230316
